FAERS Safety Report 5094698-5 (Version None)
Quarter: 2006Q3

REPORT INFORMATION
  Report Type: 
  Country: None (occurrence: None)
  Receive Date: 20060731
  Receipt Date: 20060418
  Transmission Date: 20061208
  Serious: No
  Sender: FDA-Public Use
  Company Number: 2006PV012287

PATIENT
  Age: 54 Year
  Sex: Male

DRUGS (5)
  1. BYETTA [Suspect]
     Indication: DIABETES MELLITUS NON-INSULIN-DEPENDENT
     Dosage: SEE IMAGE
     Route: 058
     Dates: start: 20050101, end: 20051101
  2. BYETTA [Suspect]
     Indication: DIABETES MELLITUS NON-INSULIN-DEPENDENT
     Dosage: SEE IMAGE
     Route: 058
     Dates: start: 20051101
  3. ACTOS [Concomitant]
  4. METFORMIN HCL [Concomitant]
  5. AMARYL [Concomitant]

REACTIONS (3)
  - ANOREXIA [None]
  - DRUG INEFFECTIVE FOR UNAPPROVED INDICATION [None]
  - THERAPEUTIC RESPONSE UNEXPECTED [None]
